FAERS Safety Report 9290376 (Version 2)
Quarter: 2013Q2

REPORT INFORMATION
  Report Type: Spontaneous
  Country: US (occurrence: US)
  Receive Date: 20130515
  Receipt Date: 20130626
  Transmission Date: 20140414
  Serious: No
  Sender: FDA-Public Use
  Company Number: US-PFIZER INC-2013148315

PATIENT
  Age: 83 Year
  Sex: Male
  Weight: 79.37 kg

DRUGS (4)
  1. LYRICA [Suspect]
     Indication: NEUROPATHY PERIPHERAL
     Dosage: 150 MG, 3X/DAY
     Route: 048
  2. HYZAAR [Suspect]
     Indication: HYPERTENSION
     Dosage: [YDROCHLOROTHIAZIDE 50MG] / [LOSARTAN POTASSIUM 12.5 MG] DAILY
     Route: 048
     Dates: start: 20130225, end: 20130304
  3. COZAAR [Suspect]
     Dosage: UNK
     Dates: start: 2013
  4. INSULIN [Concomitant]
     Indication: DIABETES MELLITUS
     Dosage: UNK

REACTIONS (3)
  - Rash [Recovered/Resolved]
  - Pruritus [Unknown]
  - Drug hypersensitivity [Unknown]
